FAERS Safety Report 17112286 (Version 1)
Quarter: 2019Q4

REPORT INFORMATION
  Report Type: Spontaneous
  Country: US (occurrence: US)
  Receive Date: 20191111
  Receipt Date: 20191111
  Transmission Date: 20200122
  Serious: Yes (Life-Threatening)
  Sender: FDA-Public Use
  Company Number: None

PATIENT
  Age: 59 Year
  Sex: Female
  Weight: 80.29 kg

DRUGS (1)
  1. ALPRAZOLAM 0.5MG [Suspect]
     Active Substance: ALPRAZOLAM
     Indication: ANXIETY
     Dosage: ON 5 OFF SINCE 8/ -  10/25/19
     Route: 048
     Dates: start: 20170802, end: 20191025

REACTIONS (3)
  - Rash [None]
  - Periorbital swelling [None]
  - Swelling face [None]

NARRATIVE: CASE EVENT DATE: 20190530
